FAERS Safety Report 10921819 (Version 1)
Quarter: 2015Q1

REPORT INFORMATION
  Report Type: Spontaneous
  Country: US (occurrence: None)
  Receive Date: 20150128
  Receipt Date: 20150128
  Transmission Date: 20150721
  Serious: No
  Sender: FDA-Public Use
  Company Number: 2014TUS010633

PATIENT
  Age: 27 Year
  Sex: Male
  Weight: 72.6 kg

DRUGS (1)
  1. BRINTELLIX [Suspect]
     Active Substance: VORTIOXETINE HYDROBROMIDE
     Indication: DEPRESSION
     Route: 048
     Dates: start: 20140707, end: 20140710

REACTIONS (2)
  - Feeling abnormal [None]
  - Depression [None]
